FAERS Safety Report 5347042-X (Version None)
Quarter: 2007Q2

REPORT INFORMATION
  Report Type: 
  Country: None (occurrence: None)
  Receive Date: 20070604
  Receipt Date: 20070523
  Transmission Date: 20071010
  Serious: Yes (Other)
  Sender: FDA-Public Use
  Company Number: CHNY2007CA01981

PATIENT
  Age: 45 Year
  Sex: Male

DRUGS (1)
  1. EXACT TRANSDERMAL NICOTINE PATCH (NCH)(NICOTINE) TRANS-THERAPEUTIC-SYS [Suspect]
     Indication: SMOKING CESSATION THERAPY
     Dosage: 21 MG, TRANSDERMAL
     Route: 062
     Dates: start: 20070515, end: 20070515

REACTIONS (1)
  - LOSS OF CONSCIOUSNESS [None]
